FAERS Safety Report 23056780 (Version 1)
Quarter: 2023Q4

REPORT INFORMATION
  Report Type: Spontaneous
  Country: US (occurrence: US)
  Receive Date: 20231012
  Receipt Date: 20231012
  Transmission Date: 20240110
  Serious: Yes (Hospitalization)
  Sender: FDA-Public Use
  Company Number: US-ALVOGEN-2023092368

PATIENT
  Age: 75 Year
  Sex: Female

DRUGS (2)
  1. LISINOPRIL [Suspect]
     Active Substance: LISINOPRIL
     Indication: Hypertension
  2. CRESEMBA [Suspect]
     Active Substance: ISAVUCONAZONIUM SULFATE
     Indication: Pneumonia fungal
     Dosage: 372 MG, ONCE DAILY (186MG X 2 TABLETS)
     Route: 048
     Dates: start: 2022

REACTIONS (5)
  - Fall [Unknown]
  - Lower limb fracture [Unknown]
  - Head injury [Unknown]
  - Loss of consciousness [Recovered/Resolved]
  - Hypotension [Recovered/Resolved]

NARRATIVE: CASE EVENT DATE: 20230505
